FAERS Safety Report 6385530-8 (Version None)
Quarter: 2009Q4

REPORT INFORMATION
  Report Type: 
  Country: None (occurrence: None)
  Receive Date: 20091002
  Receipt Date: 20081020
  Transmission Date: 20100525
  Serious: No
  Sender: FDA-Public Use
  Company Number: US-ASTRAZENECA-2008UW19459

PATIENT
  Age: 64 Year
  Sex: Female
  Weight: 89.4 kg

DRUGS (5)
  1. ARIMIDEX [Suspect]
     Indication: BREAST CANCER
     Route: 048
     Dates: start: 20071001, end: 20080301
  2. LEVOTHYROXINE SODIUM [Concomitant]
  3. DETROL LA [Concomitant]
  4. ATORVASTATIN [Concomitant]
  5. QUINAPRIL [Concomitant]

REACTIONS (3)
  - ASTHENIA [None]
  - FATIGUE [None]
  - HUNGER [None]
